FAERS Safety Report 5820215-5 (Version None)
Quarter: 2008Q3

REPORT INFORMATION
  Report Type: 
  Country: None (occurrence: None)
  Receive Date: 20080724
  Receipt Date: 20080723
  Transmission Date: 20090109
  Serious: Yes (Hospitalization)
  Sender: FDA-Public Use
  Company Number: PHEH1999US05291

PATIENT
  Sex: Female
  Weight: 98 kg

DRUGS (11)
  1. RAD 666 RAD+ [Suspect]
     Dosage: 1.5 MG, BID
     Route: 048
     Dates: start: 19990525
  2. PREDNISONE TAB [Suspect]
     Route: 048
     Dates: start: 19991005
  3. NEORAL [Suspect]
     Route: 048
     Dates: start: 19990814
  4. BACTRIM [Concomitant]
  5. ATENOLOL [Concomitant]
  6. LOSARTAN POTASSIUM [Concomitant]
  7. LASIX [Concomitant]
  8. LANSOPRAZOLE [Concomitant]
  9. TUMS [Concomitant]
  10. LIPITOR [Concomitant]
  11. NIFEREX (POLYSACCHARIDE-IRON COMPLEX) [Concomitant]

REACTIONS (2)
  - LYMPHOCELE [None]
  - POSTOPERATIVE WOUND COMPLICATION [None]
